FAERS Safety Report 8893199 (Version 1)
Quarter: 2012Q4

REPORT INFORMATION
  Report Type: Spontaneous
  Country: US (occurrence: None)
  Receive Date: 20121106
  Receipt Date: 20121106
  Transmission Date: 20130627
  Serious: Yes (Other)
  Sender: FDA-Public Use
  Company Number: None

PATIENT
  Age: 58 Year
  Sex: Female
  Weight: 77.11 kg

DRUGS (3)
  1. BUPROPION HCL [Suspect]
     Dosage: 3 x 150mg tabs Daily po
     Route: 048
     Dates: start: 20120914, end: 20120930
  2. BUPROPION HCL [Suspect]
     Dosage: 3 x 150mg tabs Daily po
     Route: 048
     Dates: start: 20120914, end: 20120930
  3. BUPROPION HCL [Suspect]
     Dosage: 3 x 150mg tabs Daily po
     Route: 048
     Dates: start: 20120914, end: 20120930

REACTIONS (6)
  - Mood swings [None]
  - Depression [None]
  - Anxiety [None]
  - Suicidal ideation [None]
  - Feeling abnormal [None]
  - Product substitution issue [None]
